FAERS Safety Report 16780847 (Version 1)
Quarter: 2019Q3

REPORT INFORMATION
  Report Type: Report from Study
  Country: US (occurrence: US)
  Receive Date: 20190906
  Receipt Date: 20190906
  Transmission Date: 20191005
  Serious: Yes (Life-Threatening)
  Sender: FDA-Public Use
  Company Number: US-JNJFOC-20190839200

PATIENT
  Age: 71 Year
  Sex: Male
  Weight: 77.19 kg

DRUGS (20)
  1. ABIRATERONE ACETATE. [Suspect]
     Active Substance: ABIRATERONE ACETATE
     Route: 048
     Dates: start: 20190819
  2. AMLODIPINE [Concomitant]
     Active Substance: AMLODIPINE BESYLATE
     Route: 065
     Dates: start: 20190314
  3. GABAPENTIN. [Concomitant]
     Active Substance: GABAPENTIN
     Route: 065
     Dates: start: 20190206
  4. FISH OIL [Concomitant]
     Active Substance: FISH OIL
     Route: 065
     Dates: start: 20190111
  5. HYDROCHLOROTHIAZIDE. [Concomitant]
     Active Substance: HYDROCHLOROTHIAZIDE
     Route: 065
     Dates: start: 20181105
  6. LEVEMIR [Concomitant]
     Active Substance: INSULIN DETEMIR
     Route: 065
     Dates: start: 20190206
  7. LUPRON [Concomitant]
     Active Substance: LEUPROLIDE ACETATE
     Route: 065
     Dates: start: 20180111
  8. METFORMIN [Concomitant]
     Active Substance: METFORMIN HYDROCHLORIDE
     Route: 065
     Dates: start: 20181111
  9. BEVACIZUMAB. [Concomitant]
     Active Substance: BEVACIZUMAB
     Route: 065
     Dates: start: 20190314
  10. ATORVASTATIN [Concomitant]
     Active Substance: ATORVASTATIN
     Route: 065
     Dates: start: 20190111
  11. LEKOVIT CA [Concomitant]
     Active Substance: CALCIUM CARBONATE\CHOLECALCIFEROL
     Route: 065
     Dates: start: 20190111
  12. LOMOTIL                            /00384302/ [Concomitant]
     Active Substance: LOPERAMIDE HYDROCHLORIDE
     Route: 065
     Dates: start: 20190422
  13. FLAXSEED OIL                       /01649403/ [Concomitant]
     Route: 065
     Dates: start: 20190111
  14. PREDNISONE. [Suspect]
     Active Substance: PREDNISONE
     Indication: PROSTATE CANCER METASTATIC
     Route: 065
     Dates: start: 20190422, end: 20190721
  15. IRON FERROUS [Concomitant]
     Route: 065
     Dates: start: 20190111
  16. DORZOLAMIDE [Concomitant]
     Active Substance: DORZOLAMIDE
     Route: 065
     Dates: start: 20190314
  17. REMERON [Concomitant]
     Active Substance: MIRTAZAPINE
     Route: 065
     Dates: start: 20190709, end: 20190717
  18. ABIRATERONE ACETATE. [Suspect]
     Active Substance: ABIRATERONE ACETATE
     Indication: PROSTATE CANCER METASTATIC
     Route: 048
     Dates: start: 20190422, end: 20190721
  19. ABIRATERONE ACETATE. [Suspect]
     Active Substance: ABIRATERONE ACETATE
     Route: 048
     Dates: start: 20190819
  20. OLMESARTAN MEDOXOMIL. [Concomitant]
     Active Substance: OLMESARTAN MEDOXOMIL
     Route: 065
     Dates: start: 20190206

REACTIONS (1)
  - Hyperuricaemia [Recovered/Resolved]

NARRATIVE: CASE EVENT DATE: 20190722
